FAERS Safety Report 13064292 (Version 1)
Quarter: 2016Q4

REPORT INFORMATION
  Report Type: Spontaneous
  Country: US (occurrence: US)
  Receive Date: 20161223
  Receipt Date: 20161223
  Transmission Date: 20170207
  Serious: Yes (Hospitalization)
  Sender: FDA-Public Use
  Company Number: None

PATIENT
  Age: 29 Year
  Sex: Female
  Weight: 83.25 kg

DRUGS (1)
  1. LISINOPRIL. [Suspect]
     Active Substance: LISINOPRIL
     Indication: HYPERTENSION
     Dosage: QUANTITY:1.5 TABLET(S); ORAL?
     Route: 048
     Dates: start: 20061201, end: 20161214

REACTIONS (1)
  - Angioedema [None]

NARRATIVE: CASE EVENT DATE: 20161214
